FAERS Safety Report 20729687 (Version 1)
Quarter: 2022Q2

REPORT INFORMATION
  Report Type: Spontaneous
  Country: US (occurrence: US)
  Receive Date: 20220420
  Receipt Date: 20220420
  Transmission Date: 20220721
  Serious: No
  Sender: FDA-Public Use
  Company Number: US-BAUSCH-BL-2022-009129

PATIENT
  Age: 76 Year
  Sex: Female
  Weight: 53.572 kg

DRUGS (3)
  1. LATANOPROST [Suspect]
     Active Substance: LATANOPROST
     Indication: Glaucoma
     Dosage: USING FOR ABOUT 3 TO 4 YEARS
     Route: 047
  2. LATANOPROST [Suspect]
     Active Substance: LATANOPROST
     Route: 047
  3. RESTASIS [Concomitant]
     Active Substance: CYCLOSPORINE
     Indication: Product used for unknown indication
     Route: 065

REACTIONS (2)
  - Instillation site pain [Unknown]
  - Product quality issue [Unknown]
